FAERS Safety Report 5595726-0 (Version None)
Quarter: 2008Q1

REPORT INFORMATION
  Report Type: 
  Country: None (occurrence: None)
  Receive Date: 20080118
  Receipt Date: 20080116
  Transmission Date: 20080703
  Serious: Yes (Other)
  Sender: FDA-Public Use
  Company Number: A0702739A

PATIENT
  Age: 31 Year
  Sex: Male
  Weight: 106.8 kg

DRUGS (4)
  1. ALLI [Suspect]
     Route: 048
     Dates: start: 20080105, end: 20080110
  2. PLAQUENIL [Concomitant]
  3. MULTI-VITAMIN [Concomitant]
  4. ANTACID TAB [Concomitant]

REACTIONS (4)
  - GASTROINTESTINAL HAEMORRHAGE [None]
  - RECTAL DISCHARGE [None]
  - RECTAL HAEMORRHAGE [None]
  - STEATORRHOEA [None]
